FAERS Safety Report 8156861 (Version 2)
Quarter: 2012Q4

REPORT INFORMATION
  Report Type: 
  Country: FR (occurrence: FR)
  Receive Date: 20110926
  Receipt Date: 20120909
  Transmission Date: 20130627
  Serious: Yes (Other)
  Sender: FDA-Public Use
  Company Number: FR-BRISTOL-MYERS SQUIBB COMPANY-16089716

PATIENT

DRUGS (1)
  1. HYDREA CAPS 500 MG [Suspect]

REACTIONS (1)
  - Pancreatitis [Unknown]
